FAERS Safety Report 8472186-3 (Version None)
Quarter: 2012Q2

REPORT INFORMATION
  Report Type: 
  Country: None (occurrence: None)
  Receive Date: 20120622
  Receipt Date: 20120622
  Transmission Date: 20120825
  Serious: Yes (Other)
  Sender: FDA-Public Use
  Company Number: None

PATIENT
  Sex: Male

DRUGS (1)
  1. BETASERON [Suspect]
     Indication: MULTIPLE SCLEROSIS
     Dosage: 0.25 SUB Q EVERY OTHER DAY SUB Q
     Route: 058
     Dates: start: 20120301

REACTIONS (2)
  - HEART RATE IRREGULAR [None]
  - EXTRASYSTOLES [None]
